FAERS Safety Report 6165415-2 (Version None)
Quarter: 2009Q2

REPORT INFORMATION
  Report Type: 
  Country: None (occurrence: None)
  Receive Date: 20090423
  Receipt Date: 20090414
  Transmission Date: 20091009
  Serious: Yes (Hospitalization)
  Sender: FDA-Public Use
  Company Number: JP-WATSON-2009-02533

PATIENT
  Age: 60 Year
  Sex: Male

DRUGS (2)
  1. FLUOROURACIL [Suspect]
     Indication: OESOPHAGEAL CARCINOMA
     Dosage: 800 MG/M2 ON DAYS 2-6
     Route: 042
     Dates: start: 20070801, end: 20070801
  2. NEDAPLATIN [Suspect]
     Indication: OESOPHAGEAL CARCINOMA
     Dosage: 90 MG/M2 ON DAY 1
     Route: 042
     Dates: start: 20070801, end: 20070801

REACTIONS (1)
  - GASTROINTESTINAL FISTULA [None]
